FAERS Safety Report 19249445 (Version 1)
Quarter: 2021Q2

REPORT INFORMATION
  Report Type: Spontaneous
  Country: CA (occurrence: CA)
  Receive Date: 20210513
  Receipt Date: 20210513
  Transmission Date: 20210717
  Serious: Yes (Hospitalization, Other)
  Sender: FDA-Public Use
  Company Number: CA-SAMSUNG BIOEPIS-SB-2021-11296

PATIENT
  Age: 70 Year
  Sex: Male

DRUGS (2)
  1. INFLIXIMAB [Suspect]
     Active Substance: INFLIXIMAB
     Indication: CROHN^S DISEASE
     Route: 042
  2. PREDNISONE. [Concomitant]
     Active Substance: PREDNISONE
     Indication: PRODUCT USED FOR UNKNOWN INDICATION
     Route: 065

REACTIONS (21)
  - Upper gastrointestinal haemorrhage [Unknown]
  - Abdominal pain [Unknown]
  - Cardiac arrest [Unknown]
  - Syncope [Unknown]
  - Dry skin [Unknown]
  - Pallor [Unknown]
  - Fistula [Unknown]
  - Gastrointestinal disorder [Unknown]
  - Glaucoma [Unknown]
  - Eating disorder [Unknown]
  - Skin warm [Unknown]
  - Weight decreased [Unknown]
  - Gait disturbance [Unknown]
  - Thrombosis [Unknown]
  - Loss of personal independence in daily activities [Unknown]
  - Malaise [Unknown]
  - Peripheral swelling [Unknown]
  - Tachycardia [Unknown]
  - Hypotension [Unknown]
  - Product use issue [Unknown]
  - Off label use [Unknown]
